FAERS Safety Report 14228405 (Version 1)
Quarter: 2017Q4

REPORT INFORMATION
  Report Type: Spontaneous
  Country: FR (occurrence: FR)
  Receive Date: 20171127
  Receipt Date: 20171127
  Transmission Date: 20180321
  Serious: Yes (Other)
  Sender: FDA-Public Use
  Company Number: FR-MERCK KGAA-2036094

PATIENT
  Age: 56 Year
  Sex: Male

DRUGS (7)
  1. NOVOTHYROX [Suspect]
     Active Substance: LEVOTHYROXINE SODIUM
     Indication: PRODUCT USED FOR UNKNOWN INDICATION
     Route: 048
     Dates: end: 20170907
  2. DOLIPRANE [Concomitant]
     Active Substance: ACETAMINOPHEN
  3. THERALENE [Concomitant]
     Active Substance: TRIMEPRAZINE
  4. TRANSIPEG [Concomitant]
     Active Substance: POLYETHYLENE GLYCOL 3350
  5. FLUANXOL [Concomitant]
     Active Substance: FLUPENTIXOL
  6. GARDENAL [Concomitant]
     Active Substance: PHENOBARBITAL
  7. LOXAPAC [Concomitant]
     Active Substance: LOXAPINE SUCCINATE

REACTIONS (4)
  - Eczema [Recovered/Resolved]
  - Pruritus [Recovered/Resolved]
  - Erythema multiforme [Recovered/Resolved]
  - Blood thyroid stimulating hormone increased [Recovered/Resolved]

NARRATIVE: CASE EVENT DATE: 20170621
